FAERS Safety Report 8243517-4 (Version None)
Quarter: 2012Q1

REPORT INFORMATION
  Report Type: 
  Country: None (occurrence: None)
  Receive Date: 20120329
  Receipt Date: 20120320
  Transmission Date: 20120608
  Serious: Yes (Other)
  Sender: FDA-Public Use
  Company Number: PHHY2012FR025633

PATIENT
  Age: 36 Year
  Sex: Female
  Weight: 80 kg

DRUGS (11)
  1. CLOZAPINE [Suspect]
     Dosage: 1 DF, UNK
     Route: 048
     Dates: start: 20110708
  2. CLONAZEPAM [Suspect]
     Dosage: 15 DRP, UNK
     Route: 048
     Dates: start: 20110708
  3. ZONEGRAN [Suspect]
     Dosage: 1 DF, UNK
     Dates: start: 20110708
  4. LITHIUM CARBONATE [Concomitant]
  5. ATARAX [Concomitant]
  6. OXAZEPAM [Suspect]
     Dosage: 1 DF, UNK
     Dates: start: 20110708
  7. NOZINAN                                 /NET/ [Concomitant]
  8. DIPIPERON [Concomitant]
  9. LAMICTAL [Suspect]
     Dosage: 1 DF, UNK
     Dates: start: 20110708
  10. LOXAPINE [Suspect]
     Dosage: 75 DRP, UNK
     Route: 048
     Dates: start: 20110708
  11. KEPPRA [Suspect]
     Dosage: 1 DF, UNK
     Dates: start: 20110708

REACTIONS (6)
  - PERIOSTITIS [None]
  - SOMNOLENCE [None]
  - FATIGUE [None]
  - PYREXIA [None]
  - AGITATION [None]
  - WRONG DRUG ADMINISTERED [None]
